FAERS Safety Report 5341735-6 (Version None)
Quarter: 2007Q2

REPORT INFORMATION
  Report Type: 
  Country: None (occurrence: None)
  Receive Date: 20070530
  Receipt Date: 20070516
  Transmission Date: 20071010
  Serious: Yes (Life-Threatening)
  Sender: FDA-Public Use
  Company Number: CLOF-10534

PATIENT
  Age: 61 Year

DRUGS (25)
  1. CLOFARABINE. MFR: GENZYME [Suspect]
     Indication: ACUTE MYELOID LEUKAEMIA
     Dates: start: 20070314, end: 20070318
  2. DAUNORUBICIN HCL [Suspect]
     Indication: ACUTE MYELOID LEUKAEMIA
     Dates: start: 20070314, end: 20070318
  3. MYLOTARG [Suspect]
     Indication: ACUTE MYELOID LEUKAEMIA
     Dates: start: 20070314, end: 20070318
  4. OMEPRAZOLE [Concomitant]
  5. ALIMEMAZINE TARTRATE [Concomitant]
  6. CHLORHEXIDINE GLUCONATE [Concomitant]
  7. ITRACONAZOLE [Concomitant]
  8. ACYCLOVIR [Concomitant]
  9. CHLORPHENIRAMINE MALEATE [Concomitant]
  10. CLOBESTASOL PROPIONATE [Concomitant]
  11. TEICOPLANIN [Concomitant]
  12. VANCOMYCIN HCL [Concomitant]
  13. MEROPENEM [Concomitant]
  14. AMPHOTERICIN B [Concomitant]
  15. NEUPOGEN [Concomitant]
  16. POTASSIUM CHLORIDE [Concomitant]
  17. COTRIMOXAZOLE [Concomitant]
  18. CASPOFUNGIN [Concomitant]
  19. CALCIUM CARBONATE [Concomitant]
  20. COMBIVENT NEBULISER [Concomitant]
  21. PHOSPHATE SANDOZ [Concomitant]
  22. LORAZEPAM [Concomitant]
  23. LOPERAMIDE HCL [Concomitant]
  24. CALCIUM GLUCONATE [Concomitant]
  25. ORAL BALANCE [Concomitant]

REACTIONS (2)
  - PANCYTOPENIA [None]
  - PYREXIA [None]
